FAERS Safety Report 9823233 (Version 1)
Quarter: 2014Q1

REPORT INFORMATION
  Report Type: Spontaneous
  Country: US (occurrence: US)
  Receive Date: 20140116
  Receipt Date: 20140116
  Transmission Date: 20141002
  Serious: No
  Sender: FDA-Public Use
  Company Number: US-PURDUE-USA-2013-0109208

PATIENT
  Sex: Female

DRUGS (1)
  1. DILAUDID INJECTION [Suspect]
     Indication: HYSTERECTOMY

REACTIONS (2)
  - Anxiety [Unknown]
  - Feeling abnormal [Unknown]
